FAERS Safety Report 9163296 (Version 1)
Quarter: 2013Q1

REPORT INFORMATION
  Report Type: Spontaneous
  Country: MY (occurrence: MY)
  Receive Date: 20130314
  Receipt Date: 20130314
  Transmission Date: 20140127
  Serious: Yes (Other)
  Sender: FDA-Public Use
  Company Number: MY-GLAXOSMITHKLINE-B0874691A

PATIENT
  Age: 54 Year
  Sex: Female

DRUGS (4)
  1. ZOVIRAX [Suspect]
     Indication: MENINGITIS
     Dosage: 2UNIT PER DAY
     Route: 042
  2. CEFTRIAXONE [Suspect]
     Indication: MENINGITIS
     Dosage: 4G PER DAY
     Route: 042
  3. LOVASTATIN [Concomitant]
  4. AMOXICILLIN + CLAVULANATE POTASSIUM [Concomitant]

REACTIONS (1)
  - Dermatitis bullous [Unknown]
